FAERS Safety Report 13297653 (Version 1)
Quarter: 2017Q1

REPORT INFORMATION
  Report Type: Spontaneous
  Country: US (occurrence: US)
  Receive Date: 20170305
  Receipt Date: 20170305
  Transmission Date: 20170428
  Serious: No
  Sender: FDA-Public Use
  Company Number: None

PATIENT
  Age: 57 Year
  Sex: Female
  Weight: 49.5 kg

DRUGS (7)
  1. TRAMADOL. [Suspect]
     Active Substance: TRAMADOL
     Indication: FIBROMYALGIA
     Dosage: ?          QUANTITY:2 TABLET(S);?EVERY 6 HOURS
     Route: 048
     Dates: start: 20170227, end: 20170303
  2. KCL [Concomitant]
     Active Substance: POTASSIUM CHLORIDE
  3. MAGNESIUM [Concomitant]
     Active Substance: MAGNESIUM
  4. CRANBERRY CAPSULES W/ PREBIOTIC AND PROBIOTIC [Concomitant]
  5. MULTIVITAMIN W/ENERGY ENHANCER [Concomitant]
  6. CEPHALEXIN. [Concomitant]
     Active Substance: CEPHALEXIN
  7. ESTRADIOL. [Concomitant]
     Active Substance: ESTRADIOL

REACTIONS (8)
  - Headache [None]
  - Palpitations [None]
  - Nausea [None]
  - Blood potassium decreased [None]
  - Urinary tract infection [None]
  - Tremor [None]
  - Dyspnoea [None]
  - Dehydration [None]

NARRATIVE: CASE EVENT DATE: 20170228
